FAERS Safety Report 5064142-2 (Version None)
Quarter: 2006Q3

REPORT INFORMATION
  Report Type: 
  Country: None (occurrence: None)
  Receive Date: 20060728
  Receipt Date: 20050816
  Transmission Date: 20061208
  Serious: No
  Sender: FDA-Public Use
  Company Number: US-GLAXOSMITHKLINE-A0570420A

PATIENT
  Age: 2 Month
  Sex: Male

DRUGS (2)
  1. ZANTAC [Suspect]
     Dosage: 4ML THREE TIMES PER DAY
     Route: 048
     Dates: start: 20050815, end: 20050815
  2. NO CONCURRENT MEDICATION [Concomitant]

REACTIONS (4)
  - CONSTIPATION [None]
  - FATIGUE [None]
  - TREMOR [None]
  - VOMITING [None]
